FAERS Safety Report 5694942-7 (Version None)
Quarter: 2008Q2

REPORT INFORMATION
  Report Type: 
  Country: None (occurrence: None)
  Receive Date: 20080404
  Receipt Date: 20080325
  Transmission Date: 20081010
  Serious: Yes (Other)
  Sender: FDA-Public Use
  Company Number: FR-SANOFI-SYNTHELABO-A02200703816

PATIENT
  Sex: Female
  Weight: 120 kg

DRUGS (7)
  1. PLAQUENIL [Suspect]
     Indication: SYSTEMIC LUPUS ERYTHEMATOSUS
     Route: 048
     Dates: start: 19890901
  2. SYMBICORT [Concomitant]
     Indication: ASTHMA
     Route: 045
  3. PROPRANOLOL [Concomitant]
     Indication: HYPERTENSION
     Route: 048
  4. TAREG [Concomitant]
     Indication: HYPERTENSION
     Route: 048
  5. FUROSEMIDE [Concomitant]
     Indication: HYPERTENSION
     Route: 048
  6. GLUCOR [Concomitant]
     Indication: DIABETES MELLITUS
     Route: 048
  7. HUMALOG [Concomitant]
     Indication: DIABETES MELLITUS
     Route: 058

REACTIONS (3)
  - BENIGN LUNG NEOPLASM [None]
  - BENIGN NEOPLASM OF THYROID GLAND [None]
  - TONGUE DISORDER [None]
